FAERS Safety Report 9966503 (Version 2)
Quarter: 2014Q1

REPORT INFORMATION
  Report Type: Report from Study
  Country: US (occurrence: US)
  Receive Date: 20140305
  Receipt Date: 20140305
  Transmission Date: 20141002
  Serious: Yes (Other)
  Sender: FDA-Public Use
  Company Number: US-ABBVIE-13P-163-1117640-00

PATIENT
  Age: 87 Year
  Sex: Female

DRUGS (4)
  1. HUMIRA [Suspect]
     Indication: PSORIATIC ARTHROPATHY
     Dates: start: 2006, end: 2010
  2. HUMIRA [Suspect]
     Dates: start: 2012
  3. CALCIUM + D3 [Concomitant]
     Indication: MINERAL SUPPLEMENTATION
     Dosage: 600 MG + 400 IU
  4. PROBIOTIC OVER THE COUNTER [Concomitant]
     Indication: NUTRITIONAL SUPPLEMENTATION

REACTIONS (4)
  - Myocardial infarction [Recovering/Resolving]
  - Pain in extremity [Unknown]
  - Mobility decreased [Unknown]
  - Spinal compression fracture [Unknown]
